FAERS Safety Report 8596164 (Version 4)
Quarter: 2014Q1

REPORT INFORMATION
  Report Type: Spontaneous
  Country: US (occurrence: US)
  Receive Date: 20120605
  Receipt Date: 20140103
  Transmission Date: 20141002
  Serious: Yes (Death)
  Sender: FDA-Public Use
  Company Number: US-ASTRAZENECA-2012SE34797

PATIENT
  Age: 48 Year
  Sex: Female

DRUGS (16)
  1. NEXIUM [Suspect]
     Indication: GASTROOESOPHAGEAL REFLUX DISEASE
     Route: 048
     Dates: start: 2008, end: 2010
  2. NEXIUM [Suspect]
     Indication: GASTROOESOPHAGEAL REFLUX DISEASE
     Route: 048
     Dates: start: 20080617
  3. SINGULAIR [Concomitant]
     Route: 048
     Dates: start: 20100623
  4. HYDROCO/APAP [Concomitant]
     Indication: PAIN
     Dosage: 5-500MG, ONE OR TWO TABLETS BY MOUTH EVERY 4 TO 6 HOURS AS NEEDED
     Route: 048
     Dates: start: 20100722
  5. METHYLPRED [Concomitant]
     Dates: start: 20100622
  6. NEPHRO-VITE [Concomitant]
     Route: 048
     Dates: start: 20100707
  7. RELION/NOVO [Concomitant]
     Dosage: 40 UNITE IN THE MORNING AND 20 UNITS IN THE EVENING
     Dates: start: 20100119
  8. PHOSLO [Concomitant]
     Route: 048
     Dates: start: 20100301
  9. METOCLOPRAMIDE [Concomitant]
     Route: 048
     Dates: start: 20100603
  10. VYTORIN [Concomitant]
     Dosage: 10-40MG, EVERY DAY
     Route: 048
     Dates: start: 20080606
  11. CEPHALEXIN [Concomitant]
     Dosage: ONE CAP BY MOUTH TWICE DAILY FOR 7 DAYS
     Route: 048
     Dates: start: 20080503
  12. CIMETIDINE [Concomitant]
     Dosage: TAKE ONE TAB BY MOUTH EVERY 6 HOURS FOR 4 DOSES
     Route: 048
     Dates: start: 20100127
  13. PREDNISONE [Concomitant]
     Dosage: TAKE 4 TAB BY MOUTH EVERY DAY FOR 2 DAYS, 2 EVERY DAY FOR THREE DAYS, 1 EVERY DAY FOR TWO DAYS
     Route: 048
     Dates: start: 20091121
  14. LANTUS VIAL [Concomitant]
     Dosage: 50 UNITES TWICE A DAY
     Dates: start: 20100304
  15. DIPHENHYDRAM [Concomitant]
     Dosage: EVERY 6 HOURS
     Route: 048
     Dates: start: 20100127
  16. PANTOPRAZOLE [Concomitant]
     Route: 048
     Dates: start: 20091121

REACTIONS (5)
  - Death [Fatal]
  - Osteoporosis [Unknown]
  - Multiple fractures [Unknown]
  - Musculoskeletal discomfort [Unknown]
  - Condition aggravated [Unknown]
